FAERS Safety Report 4330233-4 (Version None)
Quarter: 2004Q1

REPORT INFORMATION
  Report Type: 
  Country: None (occurrence: None)
  Receive Date: 20040329
  Receipt Date: 20040315
  Transmission Date: 20041129
  Serious: Yes (Life-Threatening, Hospitalization, Other)
  Sender: FDA-Public Use
  Company Number: DE-SHR-04-021510

PATIENT
  Age: 67 Year
  Sex: Female
  Weight: 68 kg

DRUGS (8)
  1. MAGNEVIST [Suspect]
     Indication: NUCLEAR MAGNETIC RESONANCE IMAGING
     Dosage: 15 ML, 1 DOSE, INTRAVENOUS
     Route: 042
     Dates: start: 20040219, end: 20040219
  2. BLOPRESS  /GFR/  (CANDESARTAN CILEXETIL) [Concomitant]
  3. PANTOZOL        /GFR/ (PANTOPRAZOLE SODIUM) [Concomitant]
  4. BISOPROLOL FUMARATE [Concomitant]
  5. NORVASC           /DEN/ (AMLODIPINE BESILATE) [Concomitant]
  6. LASIX     /SCH/ (FUROSEMIDE SODIUM) [Concomitant]
  7. KALINOR RETARD [Concomitant]
  8. ACETYLSALICYLIC ACID SRT [Concomitant]

REACTIONS (10)
  - ANAPHYLACTIC SHOCK [None]
  - CARDIAC ARREST [None]
  - CONTRAST MEDIA REACTION [None]
  - CYANOSIS [None]
  - DYSPNOEA [None]
  - ERYTHEMA [None]
  - MYOCARDIAL ISCHAEMIA [None]
  - NAUSEA [None]
  - PNEUMONIA [None]
  - POLYURIA [None]
